FAERS Safety Report 8224777-2 (Version None)
Quarter: 2012Q1

REPORT INFORMATION
  Report Type: 
  Country: None (occurrence: None)
  Receive Date: 20120321
  Receipt Date: 20120315
  Transmission Date: 20120608
  Serious: Yes (Other)
  Sender: FDA-Public Use
  Company Number: US-AMGEN-USASP2011042764

PATIENT
  Age: 50 Year
  Sex: Female

DRUGS (5)
  1. CYCLOBENZAPRINE HCL [Concomitant]
     Dosage: 10 UNK, UNK
     Route: 048
     Dates: start: 20110301
  2. HYDROCODONE [Concomitant]
     Dosage: 7.5 UNK, UNK
     Route: 048
     Dates: start: 20110301
  3. PROLIA [Suspect]
     Indication: OSTEOPOROSIS POSTMENOPAUSAL
     Dosage: 60 MG, Q6MO
     Route: 058
     Dates: start: 20110812
  4. DICLOFENAC SODIUM [Concomitant]
     Dosage: 75 UNK, UNK
     Route: 048
     Dates: start: 20110601
  5. VITAMIN D [Concomitant]
     Dosage: UNK UNK, 2 TIMES/WK
     Route: 048
     Dates: start: 20110601

REACTIONS (10)
  - PALPITATIONS [None]
  - CHEST DISCOMFORT [None]
  - DYSPHONIA [None]
  - INSOMNIA [None]
  - HEADACHE [None]
  - INFLUENZA [None]
  - BACK PAIN [None]
  - DYSPNOEA [None]
  - FEELING ABNORMAL [None]
  - ASTHENIA [None]
